FAERS Safety Report 7834820-8 (Version None)
Quarter: 2011Q4

REPORT INFORMATION
  Report Type: 
  Country: None (occurrence: None)
  Receive Date: 20111024
  Receipt Date: 20110310
  Transmission Date: 20120403
  Serious: Yes (Hospitalization)
  Sender: FDA-Public Use
  Company Number: DE-ABBOTT-11P-062-0710773-00

PATIENT
  Sex: Female

DRUGS (11)
  1. HUMIRA [Suspect]
     Indication: RHEUMATOID ARTHRITIS
     Dates: start: 20070215
  2. BERLINSULIN [Concomitant]
     Indication: PRODUCT USED FOR UNKNOWN INDICATION
     Dosage: 4 TIMES
  3. CAPROPRIL [Concomitant]
     Indication: PRODUCT USED FOR UNKNOWN INDICATION
     Dosage: 50MG MORNING, 25MG EVENING
  4. L -THYROXIN 100 [Concomitant]
     Indication: PRODUCT USED FOR UNKNOWN INDICATION
  5. OMEPRAZOLE [Concomitant]
     Indication: PRODUCT USED FOR UNKNOWN INDICATION
  6. IBUPROFEN [Concomitant]
     Indication: PRODUCT USED FOR UNKNOWN INDICATION
  7. FURACIN [Concomitant]
     Indication: PRODUCT USED FOR UNKNOWN INDICATION
  8. BUDESONIDE [Concomitant]
     Indication: PRODUCT USED FOR UNKNOWN INDICATION
  9. PANTOPRAZOLE SODIUM [Concomitant]
     Indication: PRODUCT USED FOR UNKNOWN INDICATION
  10. LORSANA [Concomitant]
     Indication: PRODUCT USED FOR UNKNOWN INDICATION
  11. INSULIN OF UNKNOWN NAME [Concomitant]
     Indication: PRODUCT USED FOR UNKNOWN INDICATION

REACTIONS (7)
  - ERYSIPELAS [None]
  - STAPHYLOCOCCAL INFECTION [None]
  - GENERALISED ERYTHEMA [None]
  - SPUTUM PURULENT [None]
  - PRURITUS GENERALISED [None]
  - ASTHMA [None]
  - PRODUCTIVE COUGH [None]
